FAERS Safety Report 9200108 (Version 1)
Quarter: 2013Q1

REPORT INFORMATION
  Report Type: Report from Study
  Country: FR (occurrence: FR)
  Receive Date: 20130329
  Receipt Date: 20130329
  Transmission Date: 20140127
  Serious: Yes (Hospitalization)
  Sender: FDA-Public Use
  Company Number: FR-PFIZER INC-2013031016

PATIENT
  Age: 48 Year
  Sex: Female
  Weight: 44 kg

DRUGS (11)
  1. BLINDED PLACEBO [Suspect]
     Indication: SMOKING CESSATION THERAPY
     Dosage: UNK, 1X/DAY
     Dates: start: 20111104, end: 20111106
  2. BLINDED VARENICLINE TARTRATE [Suspect]
     Indication: SMOKING CESSATION THERAPY
     Dosage: UNK, 1X/DAY
     Dates: start: 20111104, end: 20111106
  3. BLINDED PLACEBO [Suspect]
     Dosage: UNK, 2X/DAY
     Dates: start: 20111107, end: 20111110
  4. BLINDED VARENICLINE TARTRATE [Suspect]
     Dosage: UNK, 2X/DAY
     Dates: start: 20111107, end: 20111110
  5. BLINDED PLACEBO [Suspect]
     Dosage: UNK, 2X/DAY
     Dates: start: 20111111, end: 20111118
  6. BLINDED VARENICLINE TARTRATE [Suspect]
     Dosage: UNK, 2X/DAY
     Dates: start: 20111111, end: 20111118
  7. TRUVADA [Concomitant]
     Indication: HIV INFECTION
     Dosage: 1 DF, 1X/DAY
     Dates: start: 20080126, end: 201209
  8. REYATAZ [Concomitant]
     Indication: HIV INFECTION
     Dosage: 300 MG, 1X/DAY
     Dates: start: 20080126, end: 201209
  9. NORVIR [Concomitant]
     Indication: HIV INFECTION
     Dosage: 100 MG, 1X/DAY
     Dates: start: 20080126, end: 201209
  10. IMOVANE [Concomitant]
     Indication: SLEEP DISORDER
     Dosage: 7.5 MG, 1X/DAY
     Dates: start: 20121010
  11. FORTIMEL [Concomitant]
     Indication: NUTRITIONAL SUPPLEMENTATION
     Dosage: 1 DF, 1X/DAY
     Dates: start: 20120725

REACTIONS (1)
  - Bronchiolitis [Recovered/Resolved]
